FAERS Safety Report 14196674 (Version 3)
Quarter: 2017Q4

REPORT INFORMATION
  Report Type: Spontaneous
  Country: US (occurrence: US)
  Receive Date: 20171116
  Receipt Date: 20171220
  Transmission Date: 20180321
  Serious: No
  Sender: FDA-Public Use
  Company Number: US-009507513-1711USA003876

PATIENT
  Age: 61 Year
  Sex: Male

DRUGS (6)
  1. ENBREL [Concomitant]
     Active Substance: ETANERCEPT
     Dosage: UNK
  2. M-M-R II [Suspect]
     Active Substance: MEASLES VIRUS STRAIN ENDERS^ ATTENUATED EDMONSTON LIVE ANTIGEN\MUMPS VIRUS STRAIN B LEVEL JERYL LYNN LIVE ANTIGEN\RUBELLA VIRUS STRAIN WISTAR RA 27/3 LIVE ANTIGEN
     Indication: PROPHYLAXIS
     Route: 058
     Dates: start: 20171010, end: 20171010
  3. STERILE DILUENT [Suspect]
     Active Substance: WATER
     Indication: PROPHYLAXIS
     Dosage: UNK
     Route: 058
     Dates: start: 20171010
  4. PREDNISONE. [Concomitant]
     Active Substance: PREDNISONE
     Dosage: 5-10 MG, UNK
  5. M-M-R II [Suspect]
     Active Substance: MEASLES VIRUS STRAIN ENDERS^ ATTENUATED EDMONSTON LIVE ANTIGEN\MUMPS VIRUS STRAIN B LEVEL JERYL LYNN LIVE ANTIGEN\RUBELLA VIRUS STRAIN WISTAR RA 27/3 LIVE ANTIGEN
     Route: 058
     Dates: start: 20171107, end: 20171107
  6. STERILE DILUENT [Suspect]
     Active Substance: WATER
     Dosage: UNK
     Route: 058
     Dates: start: 20171107

REACTIONS (3)
  - Inappropriate schedule of drug administration [Unknown]
  - No adverse event [Unknown]
  - Extra dose administered [Unknown]

NARRATIVE: CASE EVENT DATE: 2017
